FAERS Safety Report 15533761 (Version 5)
Quarter: 2025Q2

REPORT INFORMATION
  Report Type: Spontaneous
  Country: JP (occurrence: JP)
  Receive Date: 20181019
  Receipt Date: 20250522
  Transmission Date: 20250716
  Serious: Yes (Hospitalization, Other)
  Sender: LUNDBECK
  Company Number: JP-SANOFI-2018SA268747

PATIENT
  Age: 2 Year
  Sex: Female
  Weight: 7.5 kg

DRUGS (24)
  1. SABRIL [Suspect]
     Active Substance: VIGABATRIN
     Indication: Infantile spasms
     Dates: start: 201809
  2. SABRIL [Suspect]
     Active Substance: VIGABATRIN
     Dosage: 375 MG, BID
     Route: 048
     Dates: start: 20210614, end: 20210809
  3. SABRIL [Suspect]
     Active Substance: VIGABATRIN
     Dosage: 312.5 MG, BID
     Route: 048
     Dates: start: 20210810, end: 20211001
  4. SABRIL [Suspect]
     Active Substance: VIGABATRIN
     Dosage: 250 MG, BID
     Route: 048
     Dates: start: 20211011, end: 20211205
  5. SABRIL [Suspect]
     Active Substance: VIGABATRIN
     Dosage: 187.5 MG, BID
     Route: 048
     Dates: start: 20211206, end: 20220130
  6. SABRIL [Suspect]
     Active Substance: VIGABATRIN
     Dosage: 125 MG, BID
     Route: 048
     Dates: start: 20220131, end: 20220321
  7. SABRIL [Suspect]
     Active Substance: VIGABATRIN
     Dosage: 187.5 MG, BID
     Route: 048
     Dates: start: 20220322
  8. SABRIL [Suspect]
     Active Substance: VIGABATRIN
     Dosage: 437.5 MG, BID
     Route: 048
     Dates: start: 20181009, end: 20210613
  9. SABRIL [Suspect]
     Active Substance: VIGABATRIN
     Dosage: 125 MG, BID
     Route: 048
     Dates: start: 20180109, end: 20180117
  10. SABRIL [Suspect]
     Active Substance: VIGABATRIN
     Dosage: 250 MG, BID
     Route: 048
     Dates: start: 20180118, end: 20180127
  11. SABRIL [Suspect]
     Active Substance: VIGABATRIN
     Dosage: 375 MG, BID
     Route: 048
     Dates: start: 20180128, end: 20180215
  12. SABRIL [Suspect]
     Active Substance: VIGABATRIN
     Dosage: 437.5 MG, BID
     Route: 048
     Dates: start: 20180216, end: 20180222
  13. SABRIL [Suspect]
     Active Substance: VIGABATRIN
     Dosage: 450 MG, BID
     Route: 048
     Dates: start: 20180223, end: 20180315
  14. SABRIL [Suspect]
     Active Substance: VIGABATRIN
     Dosage: 500 MG, BID
     Route: 048
     Dates: start: 20180316, end: 20180507
  15. SABRIL [Suspect]
     Active Substance: VIGABATRIN
     Dosage: 562.5 MG, BID
     Route: 048
     Dates: start: 20180508, end: 20181008
  16. VALPROATE SODIUM [Concomitant]
     Active Substance: VALPROATE SODIUM
     Indication: Infantile spasms
     Route: 048
     Dates: end: 20180130
  17. VALPROATE SODIUM [Concomitant]
     Active Substance: VALPROATE SODIUM
     Route: 048
     Dates: start: 20180131, end: 20180222
  18. VALPROATE SODIUM [Concomitant]
     Active Substance: VALPROATE SODIUM
     Route: 048
     Dates: start: 20180223
  19. LAMICTAL [Concomitant]
     Active Substance: LAMOTRIGINE
     Indication: Infantile spasms
     Dates: end: 20190414
  20. LAMICTAL [Concomitant]
     Active Substance: LAMOTRIGINE
     Dates: start: 20190415, end: 20190512
  21. LAMICTAL [Concomitant]
     Active Substance: LAMOTRIGINE
     Dates: start: 20190513, end: 20190609
  22. LAMICTAL [Concomitant]
     Active Substance: LAMOTRIGINE
     Dates: start: 20190610, end: 20190707
  23. LAMICTAL [Concomitant]
     Active Substance: LAMOTRIGINE
     Dates: start: 20190708
  24. LEVOCARNITINE [Concomitant]
     Active Substance: LEVOCARNITINE
     Indication: Prophylaxis
     Route: 048
     Dates: start: 20180605, end: 20190127

REACTIONS (5)
  - Feeding disorder [Unknown]
  - Epilepsy [Recovering/Resolving]
  - Vomiting [Recovered/Resolved]
  - Vomiting [Recovered/Resolved]
  - Condition aggravated [Recovering/Resolving]

NARRATIVE: CASE EVENT DATE: 20181116
